FAERS Safety Report 9306979 (Version 1)
Quarter: 2013Q2

REPORT INFORMATION
  Report Type: Spontaneous
  Country: US (occurrence: US)
  Receive Date: 20130523
  Receipt Date: 20130523
  Transmission Date: 20140414
  Serious: Yes (Other)
  Sender: FDA-Public Use
  Company Number: US-ELI_LILLY_AND_COMPANY-US201305003433

PATIENT
  Sex: Male

DRUGS (1)
  1. HUMATROPE [Suspect]
     Dosage: 0.6MG/KG, DAILY
     Route: 065
     Dates: end: 201301

REACTIONS (2)
  - Suicidal ideation [Unknown]
  - Drug withdrawal syndrome [Unknown]
